FAERS Safety Report 16681739 (Version 1)
Quarter: 2019Q3

REPORT INFORMATION
  Report Type: Spontaneous
  Country: GB (occurrence: GB)
  Receive Date: 20190808
  Receipt Date: 20190808
  Transmission Date: 20191004
  Serious: Yes (Other)
  Sender: FDA-Public Use
  Company Number: GB-ACCORD-150784

PATIENT
  Age: 54 Year
  Sex: Female
  Weight: 105 kg

DRUGS (9)
  1. PREDNISOLONE. [Concomitant]
     Active Substance: PREDNISOLONE
     Dosage: FOR 7 DAYS
     Dates: start: 20190502, end: 20190507
  2. CLENIL MODULITE [Concomitant]
     Active Substance: BECLOMETHASONE DIPROPIONATE
     Route: 055
     Dates: start: 20190418, end: 20190423
  3. PHENOXYMETHYLPENICILLIN [Concomitant]
     Active Substance: PENICILLIN V
     Dates: start: 20190308
  4. DUORESP SPIROMAX [Concomitant]
     Active Substance: BUDESONIDE\FORMOTEROL
     Route: 055
     Dates: start: 20190619
  5. BUDESONIDE. [Concomitant]
     Active Substance: BUDESONIDE
     Route: 055
     Dates: start: 20190423, end: 20190502
  6. FUROSEMIDE. [Suspect]
     Active Substance: FUROSEMIDE
     Indication: PRODUCT USED FOR UNKNOWN INDICATION
     Dosage: MORNING
     Dates: start: 20190619
  7. LOSARTAN. [Concomitant]
     Active Substance: LOSARTAN
     Dates: start: 20190308
  8. MUCOGEL [Concomitant]
     Active Substance: ALUMINUM HYDROXIDE\MAGNESIUM HYDROXIDE
     Dosage: AFTER FOOD AND BEFORE BED
     Dates: start: 20190308
  9. BUMETANIDE. [Concomitant]
     Active Substance: BUMETANIDE
     Dosage: MORNING
     Dates: start: 20190718

REACTIONS (1)
  - Agitation [Recovered/Resolved]
